FAERS Safety Report 22318386 (Version 1)
Quarter: 2023Q2

REPORT INFORMATION
  Report Type: Spontaneous
  Country: US (occurrence: US)
  Receive Date: 20230515
  Receipt Date: 20230515
  Transmission Date: 20230722
  Serious: Yes (Hospitalization, Other)
  Sender: FDA-Public Use
  Company Number: US-ROCHE-3342413

PATIENT
  Age: 54 Year
  Sex: Female
  Weight: 59.9 kg

DRUGS (18)
  1. CAPECITABINE [Suspect]
     Active Substance: CAPECITABINE
     Indication: Product used for unknown indication
     Route: 048
  2. HERCEPTIN [Suspect]
     Active Substance: TRASTUZUMAB
     Indication: Breast cancer female
     Dosage: INTRAVENOUS DRIP, EVERY 3 WEEKS, 6MG/KG (405 MG)
     Route: 042
     Dates: start: 20200117
  3. HERCEPTIN [Suspect]
     Active Substance: TRASTUZUMAB
     Indication: Breast cancer
     Dosage: INTRAVENOUS DRIP, EVERY 3 WEEKS, 6MG/KG (405 MG)
     Route: 042
     Dates: start: 20200117
  4. HERCEPTIN [Suspect]
     Active Substance: TRASTUZUMAB
     Indication: Breast cancer female
  5. HERCEPTIN [Suspect]
     Active Substance: TRASTUZUMAB
     Indication: Breast cancer
  6. PERJETA [Suspect]
     Active Substance: PERTUZUMAB
     Indication: Product used for unknown indication
  7. TUKYSA [Suspect]
     Active Substance: TUCATINIB
     Indication: Product used for unknown indication
     Dosage: BID?DAILY DOSE: 320 MILLIGRAM
     Route: 048
  8. TAXOTERE [Suspect]
     Active Substance: DOCETAXEL
     Indication: Product used for unknown indication
  9. TYLENOL [Concomitant]
     Active Substance: ACETAMINOPHEN
     Indication: Pain
     Dosage: BID?DAILY DOSE: 1300 MILLIGRAM
     Route: 048
  10. LOPROX [Concomitant]
     Active Substance: CICLOPIROX\CICLOPIROX OLAMINE
     Dosage: APPLY TWICE DAILY TO AFFECTED FINGERS
  11. TEMOVATE [Concomitant]
     Active Substance: CLOBETASOL PROPIONATE
     Dosage: APPLY TWICE DAILY TO AFFECTED FINGERS
  12. VITAMIN B12 [Concomitant]
     Active Substance: CYANOCOBALAMIN
     Route: 048
  13. NEURONTIN [Concomitant]
     Active Substance: GABAPENTIN
     Route: 048
  14. KEPPRA [Concomitant]
     Active Substance: LEVETIRACETAM
     Route: 048
  15. LIDODERM [Concomitant]
     Active Substance: LIDOCAINE
     Dosage: APPLY 1 PATCH TO AFFECTED AREAS FOR 12 HOURS AND REMOVE FOR 12 HOURS
  16. MIRALAX [Concomitant]
     Active Substance: POLYETHYLENE GLYCOL 3350
     Indication: Constipation
  17. COMPAZINE [Concomitant]
     Active Substance: PROCHLORPERAZINE MALEATE
     Indication: Nausea
  18. COMPAZINE [Concomitant]
     Active Substance: PROCHLORPERAZINE MALEATE
     Indication: Vomiting

REACTIONS (18)
  - Back pain [Unknown]
  - Asthenia [Unknown]
  - Metastases to liver [Unknown]
  - Metastases to bone [Unknown]
  - Ataxia [Unknown]
  - Confusional state [Unknown]
  - Suicide attempt [Unknown]
  - Seizure [Unknown]
  - Gait disturbance [Unknown]
  - Blood pressure abnormal [Unknown]
  - Metastases to central nervous system [Unknown]
  - Fatigue [Unknown]
  - Delirium [Unknown]
  - Diarrhoea [Unknown]
  - Arthralgia [Unknown]
  - Multiple sclerosis relapse [Unknown]
  - Vaginal haemorrhage [Unknown]
  - Liver function test increased [Unknown]

NARRATIVE: CASE EVENT DATE: 20200312
